FAERS Safety Report 6612785-4 (Version None)
Quarter: 2010Q1

REPORT INFORMATION
  Report Type: 
  Country: None (occurrence: None)
  Receive Date: 20100303
  Receipt Date: 20100224
  Transmission Date: 20100710
  Serious: Yes (Other)
  Sender: FDA-Public Use
  Company Number: US-BAYER-201012132BCC

PATIENT
  Age: 82 Year
  Sex: Male
  Weight: 64 kg

DRUGS (7)
  1. NEO-SYNEPHRINE NASAL SOLUTION SPRAY [Suspect]
     Indication: NASAL CONGESTION
     Dosage: UNIT DOSE: 1 PUFF
     Route: 061
     Dates: start: 20100218
  2. SPIRIVA [Concomitant]
  3. AMLODIPINE [Concomitant]
  4. FLOMAX [Concomitant]
  5. SANDOSTATIN [Concomitant]
  6. HECTOROL [Concomitant]
  7. COMBIVENT [Concomitant]

REACTIONS (2)
  - MOBILITY DECREASED [None]
  - NECK PAIN [None]
